FAERS Safety Report 19206917 (Version 2)
Quarter: 2021Q2

REPORT INFORMATION
  Report Type: Report from Study
  Country: US (occurrence: US)
  Receive Date: 20210430
  Receipt Date: 20210514
  Transmission Date: 20210717
  Serious: Yes (Hospitalization)
  Sender: FDA-Public Use
  Company Number: US-EMD SERONO-9196720

PATIENT
  Age: 77 Year
  Sex: Female

DRUGS (1)
  1. REBIF [Suspect]
     Active Substance: INTERFERON BETA-1A
     Indication: PRODUCT USED FOR UNKNOWN INDICATION
     Route: 058
     Dates: start: 20080820

REACTIONS (8)
  - Sleep disorder [Unknown]
  - Mobility decreased [Unknown]
  - Red blood cell count decreased [Unknown]
  - Crying [Unknown]
  - Micturition urgency [Unknown]
  - Fall [Unknown]
  - Cellulitis [Unknown]
  - Urinary tract infection [Unknown]

NARRATIVE: CASE EVENT DATE: 202007
